FAERS Safety Report 13369020 (Version 1)
Quarter: 2017Q1

REPORT INFORMATION
  Report Type: Spontaneous
  Country: US (occurrence: US)
  Receive Date: 20170324
  Receipt Date: 20170324
  Transmission Date: 20170429
  Serious: No
  Sender: FDA-Public Use
  Company Number: US-PFIZER INC-2017125825

PATIENT
  Age: 33 Year
  Sex: Female

DRUGS (1)
  1. TESSALON [Suspect]
     Active Substance: BENZONATATE
     Indication: COUGH
     Dosage: UNK [TWO CAPSULES TWICE ON ONE DAY AND TWO CAPSULES THREE TIMES ON ANOTHER DAY]
     Dates: start: 20170307

REACTIONS (4)
  - Insomnia [Unknown]
  - Condition aggravated [Unknown]
  - Drug ineffective [Unknown]
  - Musculoskeletal chest pain [Unknown]
